FAERS Safety Report 13855589 (Version 1)
Quarter: 2017Q3

REPORT INFORMATION
  Report Type: Spontaneous
  Country: US (occurrence: US)
  Receive Date: 20170810
  Receipt Date: 20170810
  Transmission Date: 20171127
  Serious: No
  Sender: FDA-Public Use
  Company Number: US-VIFOR (INTERNATIONAL) INC.-VIT-2017-05054

PATIENT
  Age: 82 Year
  Sex: Male

DRUGS (17)
  1. UBIQUINOL [Concomitant]
     Active Substance: UBIQUINOL
  2. MAGNESIUM [Concomitant]
     Active Substance: MAGNESIUM
  3. D-RIBOSE [Concomitant]
     Active Substance: DIETARY SUPPLEMENT
  4. ARGININE HYDROCHLORIDE [Concomitant]
     Active Substance: ARGININE HYDROCHLORIDE
  5. PHYTOMENADIONE [Concomitant]
     Active Substance: PHYTONADIONE
  6. CATAPRES [Concomitant]
     Active Substance: CLONIDINE HYDROCHLORIDE
  7. CARVEDILOL. [Concomitant]
     Active Substance: CARVEDILOL
  8. ALLOPURINOL. [Concomitant]
     Active Substance: ALLOPURINOL
  9. CARNITINE [Concomitant]
     Active Substance: CARNITINE
  10. VELTASSA [Suspect]
     Active Substance: PATIROMER
     Indication: HYPERKALAEMIA
     Route: 048
     Dates: start: 20161028
  11. BUMETANIDE. [Concomitant]
     Active Substance: BUMETANIDE
  12. TESTOSTERONE. [Concomitant]
     Active Substance: TESTOSTERONE
  13. HYDRALAZINE HYDROCHLORIDE. [Concomitant]
     Active Substance: HYDRALAZINE HYDROCHLORIDE
  14. NITRIC ACID [Concomitant]
     Active Substance: NITRIC ACID
  15. BENICAR HCT [Concomitant]
     Active Substance: HYDROCHLOROTHIAZIDE\OLMESARTAN MEDOXOMIL
  16. CLONIDINE HYDROCHLORIDE. [Concomitant]
     Active Substance: CLONIDINE HYDROCHLORIDE
  17. ARMOUR THYROID [Concomitant]
     Active Substance: THYROID, PORCINE

REACTIONS (1)
  - Diarrhoea [Unknown]

NARRATIVE: CASE EVENT DATE: 201704
